FAERS Safety Report 18399941 (Version 1)
Quarter: 2020Q4

REPORT INFORMATION
  Report Type: Spontaneous
  Country: US (occurrence: US)
  Receive Date: 20201019
  Receipt Date: 20201019
  Transmission Date: 20210114
  Serious: No
  Sender: FDA-Public Use
  Company Number: US-PFIZER INC-2020400622

PATIENT
  Age: 68 Year
  Sex: Female
  Weight: 62.6 kg

DRUGS (1)
  1. NITROSTAT [Suspect]
     Active Substance: NITROGLYCERIN
     Indication: COMPUTERISED TOMOGRAM CORONARY ARTERY
     Dosage: UNK
     Route: 060
     Dates: start: 202008

REACTIONS (3)
  - Aphthous ulcer [Not Recovered/Not Resolved]
  - Off label use [Unknown]
  - Product use in unapproved indication [Unknown]

NARRATIVE: CASE EVENT DATE: 202008
